FAERS Safety Report 8144983-5 (Version None)
Quarter: 2012Q1

REPORT INFORMATION
  Report Type: 
  Country: None (occurrence: None)
  Receive Date: 20120217
  Receipt Date: 20120210
  Transmission Date: 20120608
  Serious: Yes (Other)
  Sender: FDA-Public Use
  Company Number: JP-UCBSA-051310

PATIENT

DRUGS (3)
  1. VALPROATE SODIUM [Concomitant]
     Dosage: UNKNOWN DOSE
     Route: 048
  2. KEPPRA [Suspect]
     Dosage: UNKNOWN DOSE
     Route: 048
  3. IMMUNOSUPPRESANT [Concomitant]

REACTIONS (1)
  - WHITE BLOOD CELL COUNT DECREASED [None]
